FAERS Safety Report 20833449 (Version 1)
Quarter: 2022Q2

REPORT INFORMATION
  Report Type: 
  Country: None (occurrence: None)
  Receive Date: 20220516
  Receipt Date: 20220516
  Transmission Date: 20220721
  Serious: No
  Sender: FDA-Public Use
  Company Number: PT-ROCHE-3049455

PATIENT
  Weight: 49 kg

DRUGS (8)
  1. ATEZOLIZUMAB [Suspect]
     Active Substance: ATEZOLIZUMAB
     Dosage: DOSE LAST STUDY DRUG ADMIN PRIOR AE IS 840 MG 02-MAR-2022
     Dates: start: 20201123
  2. PACLITAXEL [Suspect]
     Active Substance: PACLITAXEL
     Dosage: DOSE LAST STUDY DRUG ADMIN PRIOR AE IS 100 MG/M2 10-NOV-2021
     Dates: start: 20201123
  3. METFORMIN [Concomitant]
     Active Substance: METFORMIN HYDROCHLORIDE
     Dates: start: 2011
  4. ATORVASTATIN [Concomitant]
     Active Substance: ATORVASTATIN
     Dates: start: 201910
  5. MAGNESONA [Concomitant]
     Dates: start: 20201210
  6. PREDNISOLONE [Concomitant]
     Active Substance: PREDNISOLONE
     Dates: start: 20220202, end: 20220208
  7. PREDNISOLONE [Concomitant]
     Active Substance: PREDNISOLONE
     Dates: start: 20220209, end: 20220214
  8. PREDNISOLONE [Concomitant]
     Active Substance: PREDNISOLONE
     Dates: start: 20220215, end: 20220223

REACTIONS (1)
  - Acute interstitial pneumonitis [None]

NARRATIVE: CASE EVENT DATE: 20220309
